FAERS Safety Report 6663714-9 (Version None)
Quarter: 2010Q2

REPORT INFORMATION
  Report Type: 
  Country: None (occurrence: None)
  Receive Date: 20100401
  Receipt Date: 20100324
  Transmission Date: 20101027
  Serious: Yes (Disabling)
  Sender: FDA-Public Use
  Company Number: DE-ROCHE-694248

PATIENT
  Sex: Female

DRUGS (8)
  1. AVASTIN [Suspect]
     Route: 065
     Dates: start: 20081101
  2. OXALIPLATIN [Concomitant]
     Dosage: FUFOX-REGIME, APPLICATION ON DAY 1, 8, 15, 22 AND 36
     Dates: start: 20081001, end: 20090701
  3. FOLIC ACID [Concomitant]
     Dosage: FUFOX-REGIME, APPLICATION ON DAY 1, 8, 15, 22 AND 36
     Dates: start: 20081001, end: 20090701
  4. FOLIC ACID [Concomitant]
     Dosage: FOLFIRI-REGIME
     Dates: start: 20090901
  5. FLUOROURACIL [Concomitant]
     Dosage: FUFOX-REGIME, APPLICATION ON DAY 1, 8, 15, 22 AND 36
     Dates: start: 20081001, end: 20090701
  6. IRINOTECAN HCL [Concomitant]
     Dosage: FOLFIRI-REGIME
     Dates: start: 20090901
  7. FLUOROURACIL [Concomitant]
     Dosage: FOLFIRI-REGIME
     Route: 040
     Dates: start: 20090901
  8. FLUOROURACIL [Concomitant]
     Dosage: FOLFIRI-REGIME, ADMINISTRATED OVER 22HR
     Route: 042
     Dates: start: 20090901

REACTIONS (1)
  - OSTEONECROSIS [None]
